FAERS Safety Report 9366665 (Version 3)
Quarter: 2013Q3

REPORT INFORMATION
  Report Type: Spontaneous
  Country: US (occurrence: US)
  Receive Date: 20130625
  Receipt Date: 20130814
  Transmission Date: 20140515
  Serious: Yes (Hospitalization)
  Sender: FDA-Public Use
  Company Number: US-PFIZER INC-2013189087

PATIENT
  Sex: Female

DRUGS (2)
  1. LYRICA [Suspect]
     Dosage: UNK, 3XDAY
  2. NITROSTAT [Suspect]
     Dosage: UNK

REACTIONS (1)
  - Gallbladder disorder [Unknown]
